FAERS Safety Report 4602260-0 (Version None)
Quarter: 2005Q2

REPORT INFORMATION
  Report Type: 
  Country: None (occurrence: None)
  Receive Date: 20050215
  Receipt Date: 20041209
  Transmission Date: 20051028
  Serious: Yes (Other)
  Sender: FDA-Public Use
  Company Number: 380602

PATIENT
  Age: 61 Year
  Sex: Female
  Weight: 62.6 kg

DRUGS (3)
  1. PEGASYS (PEG-INTERFERON ALFA 2A) 90 MCG/ML [Suspect]
     Indication: HEPATITIS C
     Dosage: SUBCUTANEOUS
     Route: 058
     Dates: start: 20040730, end: 20041001
  2. COPEGUS [Suspect]
     Indication: HEPATITIS C
     Dosage: ORAL
     Route: 048
     Dates: start: 20040730, end: 20041005
  3. LEVAQUIN [Concomitant]

REACTIONS (9)
  - ARTHRALGIA [None]
  - AURICULAR SWELLING [None]
  - COUGH [None]
  - GLOSSITIS [None]
  - HAEMOGLOBIN DECREASED [None]
  - ORAL INFECTION [None]
  - ORAL PAIN [None]
  - PNEUMONIA [None]
  - STOMATITIS [None]
